FAERS Safety Report 4845674-6 (Version None)
Quarter: 2005Q4

REPORT INFORMATION
  Report Type: 
  Country: None (occurrence: None)
  Receive Date: 20051206
  Receipt Date: 20051129
  Transmission Date: 20060501
  Serious: Yes (Other)
  Sender: FDA-Public Use
  Company Number: JP-BOEHRINGER INGELHEIM PHARMACEUTICALS, INC.-2005-BP-20810NB

PATIENT
  Age: 76 Year
  Sex: Female

DRUGS (3)
  1. MICARDIS [Suspect]
     Route: 048
     Dates: start: 20051101
  2. SOLON [Concomitant]
     Route: 048
     Dates: start: 20050105
  3. MIYA BM [Concomitant]
     Route: 048
     Dates: start: 20050105

REACTIONS (2)
  - BLOOD PRESSURE DECREASED [None]
  - LOSS OF CONSCIOUSNESS [None]
